FAERS Safety Report 13765808 (Version 1)
Quarter: 2017Q3

REPORT INFORMATION
  Report Type: Spontaneous
  Country: TR (occurrence: TR)
  Receive Date: 20170718
  Receipt Date: 20170718
  Transmission Date: 20171127
  Serious: Yes (Other)
  Sender: FDA-Public Use
  Company Number: TR-IMPAX LABORATORIES, INC-2017-IPXL-02076

PATIENT
  Age: 27 Year
  Sex: Male

DRUGS (4)
  1. OXYBUTYNIN CHLORIDE ER [Suspect]
     Active Substance: OXYBUTYNIN CHLORIDE
     Indication: PRODUCT USE IN UNAPPROVED INDICATION
  2. OXYBUTYNIN CHLORIDE ER [Suspect]
     Active Substance: OXYBUTYNIN CHLORIDE
     Indication: WITHDRAWAL SYNDROME
     Dosage: UNK, 1-2 TABLETS A DAY
     Route: 065
  3. OXYBUTYNIN CHLORIDE ER [Suspect]
     Active Substance: OXYBUTYNIN CHLORIDE
     Indication: DRUG USE DISORDER
     Dosage: 20-30 TABLETS A DAY (100-150 MG)
     Route: 065
  4. OXYBUTYNIN CHLORIDE ER [Suspect]
     Active Substance: OXYBUTYNIN CHLORIDE
     Indication: ALCOHOLISM

REACTIONS (14)
  - Secretion discharge [Unknown]
  - Constipation [Unknown]
  - Anuria [Unknown]
  - Anxiety [Unknown]
  - Product use in unapproved indication [Unknown]
  - Dry mouth [Unknown]
  - Drug dependence [Unknown]
  - Boredom [Unknown]
  - Restlessness [Unknown]
  - Insomnia [Unknown]
  - Tension [Unknown]
  - Drug withdrawal syndrome [Unknown]
  - Nausea [Unknown]
  - Vision blurred [Unknown]
